FAERS Safety Report 7124703-3 (Version None)
Quarter: 2010Q4

REPORT INFORMATION
  Report Type: 
  Country: None (occurrence: None)
  Receive Date: 20101122
  Receipt Date: 20101122
  Transmission Date: 20110411
  Serious: Yes (Hospitalization)
  Sender: FDA-Public Use
  Company Number: None

PATIENT
  Sex: Female
  Weight: 58.9676 kg

DRUGS (1)
  1. LAMICTAL [Suspect]
     Indication: ANXIETY
     Dosage: ONE TABLET PO
     Route: 048
     Dates: start: 20101022, end: 20101119

REACTIONS (7)
  - DYSPHAGIA [None]
  - ECZEMA [None]
  - HEADACHE [None]
  - HERPES VIRUS INFECTION [None]
  - LIP SWELLING [None]
  - ORAL PAIN [None]
  - OROPHARYNGEAL PAIN [None]
